FAERS Safety Report 5192764-7 (Version None)
Quarter: 2006Q4

REPORT INFORMATION
  Report Type: 
  Country: None (occurrence: None)
  Receive Date: 20061220
  Receipt Date: 20061205
  Transmission Date: 20070319
  Serious: Yes (Life-Threatening)
  Sender: FDA-Public Use
  Company Number: 15323

PATIENT
  Age: 72 Year
  Sex: Male
  Weight: 44 kg

DRUGS (2)
  1. CARBOPLATIN [Suspect]
     Dates: start: 20061107, end: 20061109
  2. FLUOROURACIL [Concomitant]

REACTIONS (10)
  - CYANOSIS [None]
  - DEHYDRATION [None]
  - HYPOTENSION [None]
  - HYPOTHERMIA [None]
  - LUNG DISORDER [None]
  - LUNG INFECTION [None]
  - PANCYTOPENIA [None]
  - PNEUMOCOCCAL INFECTION [None]
  - PULMONARY TOXICITY [None]
  - RESPIRATORY DISTRESS [None]
